FAERS Safety Report 5615060-X (Version None)
Quarter: 2008Q1

REPORT INFORMATION
  Report Type: 
  Country: None (occurrence: None)
  Receive Date: 20080131
  Receipt Date: 20080114
  Transmission Date: 20080703
  Serious: Yes (Death, Life-Threatening, Hospitalization)
  Sender: FDA-Public Use
  Company Number: 2007EU001643

PATIENT
  Age: 60 Year
  Sex: Male

DRUGS (12)
  1. PROGRAF [Suspect]
     Indication: LIVER TRANSPLANT
     Dosage: 1.5 MG, BID, ORAL; 2.5 MG, BID, ORAL; 4.5 MG, BID, ORAL; 2 MG, BID, ORAL; 6 MG, BID, ORAL
     Route: 048
     Dates: start: 20070620, end: 20070622
  2. PROGRAF [Suspect]
     Indication: LIVER TRANSPLANT
     Dosage: 1.5 MG, BID, ORAL; 2.5 MG, BID, ORAL; 4.5 MG, BID, ORAL; 2 MG, BID, ORAL; 6 MG, BID, ORAL
     Route: 048
     Dates: start: 20070623, end: 20070626
  3. PROGRAF [Suspect]
     Indication: LIVER TRANSPLANT
     Dosage: 1.5 MG, BID, ORAL; 2.5 MG, BID, ORAL; 4.5 MG, BID, ORAL; 2 MG, BID, ORAL; 6 MG, BID, ORAL
     Route: 048
     Dates: start: 20070627, end: 20070703
  4. PROGRAF [Suspect]
     Indication: LIVER TRANSPLANT
     Dosage: 1.5 MG, BID, ORAL; 2.5 MG, BID, ORAL; 4.5 MG, BID, ORAL; 2 MG, BID, ORAL; 6 MG, BID, ORAL
     Route: 048
     Dates: start: 20070704, end: 20070711
  5. PROGRAF [Suspect]
     Indication: LIVER TRANSPLANT
     Dosage: 1.5 MG, BID, ORAL; 2.5 MG, BID, ORAL; 4.5 MG, BID, ORAL; 2 MG, BID, ORAL; 6 MG, BID, ORAL
     Route: 048
     Dates: start: 20070712, end: 20070715
  6. PROGRAF [Suspect]
     Indication: LIVER TRANSPLANT
     Dosage: 1.5 MG, BID, ORAL; 2.5 MG, BID, ORAL; 4.5 MG, BID, ORAL; 2 MG, BID, ORAL; 6 MG, BID, ORAL
     Route: 048
     Dates: start: 20070716
  7. THYMOGLOBLUINE          (ANTITHYMOCYTE IMMUNOGLOBULIN) [Concomitant]
  8. URSOLVAN-200               (URSODEOXYCHLOLIC ACID) [Concomitant]
  9. NEXIUM [Concomitant]
  10. VALACYCLOVIR HCL [Concomitant]
  11. CELLCEPT [Concomitant]
  12. METHYLPREDNISOLONE [Concomitant]

REACTIONS (3)
  - DRUG LEVEL FLUCTUATING [None]
  - LIVER TRANSPLANT REJECTION [None]
  - UNDERDOSE [None]
